FAERS Safety Report 9521603 (Version 1)
Quarter: 2013Q3

REPORT INFORMATION
  Report Type: Spontaneous
  Country: GB (occurrence: None)
  Receive Date: 20130911
  Receipt Date: 20130911
  Transmission Date: 20140515
  Serious: Yes (Hospitalization, Other)
  Sender: FDA-Public Use
  Company Number: AUR-APL-2013-07446

PATIENT
  Age: 75 Year
  Sex: Female

DRUGS (19)
  1. CIPROFLOXACIN [Suspect]
     Dosage: 1000 MG (500 MG, 2 IN  1 D), ORAL
     Route: 048
     Dates: start: 20121001, end: 20121007
  2. NATECAL D3 (LEKOVIT CA) [Suspect]
     Indication: PRODUCT USED FOR UNKNOWN INDICATION
  3. ZINC SULPHATE [Suspect]
     Indication: PRODUCT USED FOR UNKNOWN INDICATION
  4. ALENDRONIC ACID (ALENDRONIC ACID) [Concomitant]
  5. AMITRIPTYLINE (AMITRIPTYLINE) [Concomitant]
  6. ASPIRIN (ACETYLSALICYLIC ACID) [Concomitant]
  7. ATORVASTATIN (ATORVASTATIN) [Concomitant]
  8. CARBOCISTEINE (CARBOCISTEINE) [Concomitant]
  9. FUROSEMIDE (FUROSEMIDE) [Concomitant]
  10. GABAPENTIN (GABAPENTIN) [Concomitant]
  11. LOSARTAN (LOSARTAN) [Concomitant]
  12. NICOTINE (NICOTINE) [Concomitant]
  13. OMEPRAZOLE (OMEPRAZOLE) [Concomitant]
  14. PREDNISOLONE (PREDNISOLONE) [Concomitant]
  15. QUININE SULPHATE (QUININE SULFATE) [Concomitant]
  16. SERETIDE (SERETIDE) [Concomitant]
  17. TILDIEM RETARD (DILTIAZEM HYDROCHLORIDE) [Concomitant]
  18. TIOTROPIUM BROMIDE (TIOTROPTIUM BROMIDE) [Concomitant]
  19. TRAMADOL (TRAMADOL) [Concomitant]

REACTIONS (7)
  - Renal failure acute [None]
  - Condition aggravated [None]
  - Drug interaction [None]
  - Dyspnoea [None]
  - Treatment failure [None]
  - Sputum culture positive [None]
  - Staphylococcal infection [None]
